FAERS Safety Report 4812368-2 (Version None)
Quarter: 2005Q4

REPORT INFORMATION
  Report Type: 
  Country: None (occurrence: None)
  Receive Date: 20051026
  Receipt Date: 20051010
  Transmission Date: 20060501
  Serious: Yes (Death, Hospitalization)
  Sender: FDA-Public Use
  Company Number: 2004219104FR

PATIENT
  Age: 61 Year
  Sex: Female

DRUGS (8)
  1. GENOTONORM (SOMATROPIN) [Suspect]
     Indication: HYPOPITUITARISM
     Dosage: 0.3 MG (5.3 MG, DAILY), SUBCUTANEOUS
     Route: 058
     Dates: start: 19941005, end: 20030115
  2. DESMOPRESSIN ACETATE (DESMOPRESSIN ACETATE) [Concomitant]
  3. ESTRADIOL [Concomitant]
  4. RAMIPRIL [Concomitant]
  5. PROMETRIUM [Concomitant]
  6. ATORVASTATIN CALCIUM [Concomitant]
  7. VOLTAREN [Concomitant]
  8. FERROUS SULFATE TAB [Concomitant]

REACTIONS (5)
  - ADENOCARCINOMA [None]
  - ANAEMIA [None]
  - METASTASES TO BONE [None]
  - METASTASES TO LIVER [None]
  - OSTEOLYSIS [None]
